FAERS Safety Report 9008266 (Version 1)
Quarter: 2012Q4

REPORT INFORMATION
  Report Type: Spontaneous
  Country: AT (occurrence: None)
  Receive Date: 20121227
  Receipt Date: 20121227
  Transmission Date: 20130627
  Serious: Yes (Other)
  Sender: FDA-Public Use
  Company Number: TPG2012A01886

PATIENT
  Age: 55 Year
  Sex: Male

DRUGS (2)
  1. ACTOS (PIOGLITAZONE HYDROCHLORIDE) [Suspect]
     Indication: TYPE II DIABETES MELLITUS
     Dates: start: 201209
  2. EUCREAS (METFORMIN HYDROCHLORIDE, VILDAGLIPTIN) [Concomitant]

REACTIONS (2)
  - Vertigo [None]
  - Nausea [None]
